FAERS Safety Report 7593037-5 (Version None)
Quarter: 2011Q3

REPORT INFORMATION
  Report Type: 
  Country: None (occurrence: None)
  Receive Date: 20110706
  Receipt Date: 20110628
  Transmission Date: 20111222
  Serious: Yes (Hospitalization)
  Sender: FDA-Public Use
  Company Number: FR-ROCHE-782443

PATIENT
  Sex: Female
  Weight: 59 kg

DRUGS (10)
  1. TOCILIZUMAB [Suspect]
     Route: 042
     Dates: start: 20110615
  2. FOLIC ACID [Concomitant]
     Dates: start: 20060101
  3. METHOTREXATE [Concomitant]
     Dates: start: 20051213
  4. ACETAMINOPHEN [Concomitant]
     Dates: start: 20060425
  5. BISOPROLOL FUMARATE AND HYDROCHLOROTHIAZIDE [Concomitant]
     Dates: start: 20080120
  6. TOCILIZUMAB [Suspect]
     Indication: RHEUMATOID ARTHRITIS
     Dosage: FORM:INFUSION, LAST DOSE PRIOR TO SAE: 04 APRIL 2011
     Route: 042
     Dates: start: 20060925
  7. LANSOPRAZOL [Concomitant]
     Dates: start: 20080701
  8. ASPIRIN/PARACETAMOL/CODEINE [Concomitant]
     Dosage: DRUG REPORTED AS PARACETAMOL CODEINE
     Dates: start: 20070213
  9. ASPIRIN [Concomitant]
     Dates: start: 20110318
  10. PREDNISONE [Concomitant]
     Dates: start: 20090929

REACTIONS (1)
  - ENDOMETRIOSIS [None]
